FAERS Safety Report 8450046 (Version 2)
Quarter: 2014Q1

REPORT INFORMATION
  Report Type: Spontaneous
  Country: US (occurrence: US)
  Receive Date: 20120309
  Receipt Date: 20140124
  Transmission Date: 20141002
  Serious: Yes (Hospitalization, Other)
  Sender: FDA-Public Use
  Company Number: US-BAYER-2012-022432

PATIENT
  Age: 29 Year
  Sex: Female
  Weight: 96 kg

DRUGS (3)
  1. OCELLA [Suspect]
     Indication: CONTRACEPTION
     Dosage: UNK
     Dates: start: 200907, end: 201006
  2. OCELLA [Suspect]
     Indication: CONTRACEPTION
     Dosage: UNK
     Dates: start: 200904, end: 201003
  3. CRESTOR [Concomitant]
     Indication: BLOOD CHOLESTEROL INCREASED
     Dosage: UNK
     Dates: start: 2001, end: 2009

REACTIONS (7)
  - Gallbladder disorder [None]
  - Abdominal pain [None]
  - Procedural pain [None]
  - Dyspepsia [None]
  - Injury [None]
  - Pain [None]
  - Cholecystitis acute [None]
